FAERS Safety Report 7376464-0 (Version None)
Quarter: 2011Q1

REPORT INFORMATION
  Report Type: 
  Country: None (occurrence: None)
  Receive Date: 20110325
  Receipt Date: 20110316
  Transmission Date: 20110831
  Serious: Yes (Hospitalization)
  Sender: FDA-Public Use
  Company Number: DE-JNJFOC-20070606146

PATIENT
  Sex: Female
  Weight: 92.1 kg

DRUGS (18)
  1. LEVOTHYROXINE SODIUM [Concomitant]
     Route: 048
  2. GOLIMUMAB [Suspect]
     Dosage: WEEK 0
     Route: 058
  3. GOLIMUMAB [Suspect]
     Dosage: WEEK 36
     Route: 058
  4. MELOXICAM [Concomitant]
     Route: 048
  5. PREDNISLONE [Concomitant]
     Route: 048
  6. LIDOCAINE [Concomitant]
     Route: 014
  7. GOLIMUMAB [Suspect]
     Indication: RHEUMATOID ARTHRITIS
     Dosage: WEEK 24
     Route: 058
  8. GOLIMUMAB [Suspect]
     Dosage: WEEK 28
     Route: 058
  9. GOLIMUMAB [Suspect]
     Dosage: WEEK 40
     Route: 058
  10. GOLIMUMAB [Suspect]
     Dosage: WEEK 40
     Route: 058
  11. GOLIMUMAB [Suspect]
     Dosage: WEEK 8
     Route: 058
  12. GOLIMUMAB [Suspect]
     Dosage: WEEK 16
     Route: 058
  13. RIMEXEL [Concomitant]
     Route: 014
  14. GOLIMUMAB [Suspect]
     Dosage: WEEK 32
     Route: 058
  15. GOLIMUMAB [Suspect]
     Dosage: WEEK 16
     Route: 058
  16. GOLIMUMAB [Suspect]
     Dosage: WEEK 12
     Route: 058
  17. GOLIMUMAB [Suspect]
     Dosage: WEEK 4
     Route: 058
  18. COLECALCIFEROL [Concomitant]
     Route: 048

REACTIONS (1)
  - UTERINE HAEMORRHAGE [None]
